FAERS Safety Report 14180798 (Version 1)
Quarter: 2017Q4

REPORT INFORMATION
  Report Type: Spontaneous
  Country: US (occurrence: US)
  Receive Date: 20171110
  Receipt Date: 20171110
  Transmission Date: 20180321
  Serious: No
  Sender: FDA-Public Use
  Company Number: US-PFIZER INC-2017484033

PATIENT
  Age: 73 Year
  Sex: Male
  Weight: 68.4 kg

DRUGS (2)
  1. TORSEMIDE. [Concomitant]
     Active Substance: TORSEMIDE
     Indication: HYPERTENSION
     Dosage: 20 MG, 1X/DAY (20MG, TABLET, ONE TIME)
     Route: 048
  2. LYRICA [Suspect]
     Active Substance: PREGABALIN
     Indication: DIABETIC NEUROPATHY
     Dosage: 150 MG, 1X/DAY (ONE TIME)
     Dates: end: 20171104

REACTIONS (2)
  - Product use issue [Unknown]
  - Dizziness [Unknown]
